FAERS Safety Report 6826646-9 (Version None)
Quarter: 2010Q3

REPORT INFORMATION
  Report Type: 
  Country: None (occurrence: None)
  Receive Date: 20100709
  Receipt Date: 20100629
  Transmission Date: 20110219
  Serious: Yes (Other)
  Sender: FDA-Public Use
  Company Number: CN-PFIZER INC-2010081280

PATIENT

DRUGS (1)
  1. GLUCOTROL [Suspect]
     Route: 048

REACTIONS (1)
  - TRANSAMINASES INCREASED [None]
